FAERS Safety Report 8891446 (Version 2)
Quarter: 2013Q1

REPORT INFORMATION
  Report Type: Spontaneous
  Country: US (occurrence: None)
  Receive Date: 20121031
  Receipt Date: 20130129
  Transmission Date: 20140127
  Serious: Yes (Other)
  Sender: FDA-Public Use
  Company Number: 2012AP003451

PATIENT
  Sex: Female

DRUGS (1)
  1. ESCITALOPRAM OXALATE [Suspect]
     Indication: DEPRESSION

REACTIONS (20)
  - Throat irritation [None]
  - Headache [None]
  - Hypertension [None]
  - Arthralgia [None]
  - Myalgia [None]
  - Dizziness postural [None]
  - Nausea [None]
  - Diarrhoea [None]
  - Decreased appetite [None]
  - Urticaria [None]
  - Headache [None]
  - Palpitations [None]
  - Asthenia [None]
  - Fatigue [None]
  - Metamorphopsia [None]
  - Vision blurred [None]
  - Suicidal ideation [None]
  - Depression [None]
  - Drug ineffective [None]
  - Product substitution issue [None]
